FAERS Safety Report 5520616-9 (Version None)
Quarter: 2007Q4

REPORT INFORMATION
  Report Type: 
  Country: None (occurrence: None)
  Receive Date: 20071119
  Receipt Date: 20071105
  Transmission Date: 20080405
  Serious: Yes (Other)
  Sender: FDA-Public Use
  Company Number: JP-PFIZER INC-2007086727

PATIENT
  Sex: Male
  Weight: 57 kg

DRUGS (10)
  1. GABAPEN [Suspect]
     Indication: PAIN IN EXTREMITY
     Route: 048
  2. CYANOCOBALAMIN [Concomitant]
     Route: 048
  3. LORCAM [Concomitant]
     Route: 048
  4. TERNELIN [Concomitant]
     Route: 048
  5. SELBEX [Concomitant]
     Route: 048
  6. CERCINE [Concomitant]
  7. MAGNESIUM OXIDE [Concomitant]
     Route: 048
  8. NEW LECICARBON [Concomitant]
     Route: 054
  9. BORRAGINOL-N [Concomitant]
     Route: 062
  10. ALPROSTADIL [Concomitant]
     Route: 062

REACTIONS (1)
  - PAROSMIA [None]
